FAERS Safety Report 10176747 (Version 1)
Quarter: 2014Q2

REPORT INFORMATION
  Report Type: Spontaneous
  Country: GB (occurrence: GB)
  Receive Date: 20140516
  Receipt Date: 20140516
  Transmission Date: 20141212
  Serious: Yes (Other)
  Sender: FDA-Public Use
  Company Number: GB-BAXTER-2014BAX023714

PATIENT
  Sex: Male

DRUGS (1)
  1. DIANEAL PD4 GLUCOSE 1.36% W/V / 13.6 MG/ML [Suspect]
     Indication: PERITONEAL DIALYSIS
     Route: 033

REACTIONS (3)
  - Peritoneal effluent abnormal [Not Recovered/Not Resolved]
  - Decreased appetite [Not Recovered/Not Resolved]
  - Malaise [Not Recovered/Not Resolved]
